FAERS Safety Report 8009137-1 (Version None)
Quarter: 2011Q4

REPORT INFORMATION
  Report Type: 
  Country: None (occurrence: None)
  Receive Date: 20111227
  Receipt Date: 20111215
  Transmission Date: 20120403
  Serious: Yes (Death)
  Sender: FDA-Public Use
  Company Number: US-MYLANLABS-2010S1005551

PATIENT
  Age: 31 Year
  Sex: Male
  Weight: 86.64 kg

DRUGS (8)
  1. NEXIUM [Concomitant]
  2. OXYCODONE AND ACETAMINOPHEN [Suspect]
     Dosage: QID
  3. AMITRIPTYLINE [Suspect]
  4. FENTANYL-100 [Suspect]
     Indication: PAIN
     Dosage: CHANGE PATCHES Q3D
     Route: 062
     Dates: start: 20080401, end: 20080404
  5. LORAZEPAM [Suspect]
  6. CITALOPRAM HYDROBROMIDE [Suspect]
  7. LYRICA [Concomitant]
  8. SEROQUEL [Concomitant]

REACTIONS (3)
  - TOXICITY TO VARIOUS AGENTS [None]
  - OVERDOSE [None]
  - INTENTIONAL DRUG MISUSE [None]
